FAERS Safety Report 6831087-4 (Version None)
Quarter: 2010Q3

REPORT INFORMATION
  Report Type: 
  Country: None (occurrence: None)
  Receive Date: 20100712
  Receipt Date: 20100705
  Transmission Date: 20110219
  Serious: Yes (Death)
  Sender: FDA-Public Use
  Company Number: JP-BAYER-201011735BYL

PATIENT
  Age: 76 Year
  Sex: Male
  Weight: 62 kg

DRUGS (12)
  1. NEXAVAR [Suspect]
     Indication: HEPATIC NEOPLASM MALIGNANT
     Dosage: UNIT DOSE: 200 MG
     Route: 048
     Dates: start: 20100119, end: 20100330
  2. URSO 250 [Concomitant]
     Route: 048
     Dates: end: 20100402
  3. URSO 250 [Concomitant]
     Route: 048
     Dates: start: 20080319
  4. JUZEN-TAIHO-TO [Concomitant]
     Route: 048
     Dates: start: 20080219, end: 20100402
  5. TAKEPRON [Concomitant]
     Indication: PROPHYLAXIS
     Route: 048
     Dates: start: 20080319, end: 20100402
  6. SELBEX [Concomitant]
     Indication: PROPHYLAXIS
     Route: 048
     Dates: start: 20080219, end: 20100402
  7. VITAMEDIN [Concomitant]
     Indication: PROPHYLAXIS
     Route: 048
     Dates: start: 20080219, end: 20100402
  8. BENZALIN [Concomitant]
     Route: 048
     Dates: start: 20080219, end: 20100402
  9. KERATINAMIN [Concomitant]
     Indication: PROPHYLAXIS
     Route: 061
     Dates: start: 20100119
  10. LACTULOSE [Concomitant]
     Route: 048
     Dates: start: 20100330, end: 20100402
  11. LASIX [Concomitant]
     Route: 048
     Dates: end: 20100402
  12. ALDACTONE [Concomitant]
     Route: 048
     Dates: end: 20100402

REACTIONS (2)
  - HEPATIC FAILURE [None]
  - PALMAR-PLANTAR ERYTHRODYSAESTHESIA SYNDROME [None]
